FAERS Safety Report 10963273 (Version 1)
Quarter: 2015Q1

REPORT INFORMATION
  Report Type: Spontaneous
  Country: US (occurrence: US)
  Receive Date: 20150205
  Receipt Date: 20150205
  Transmission Date: 20150721
  Serious: Yes (Death)
  Sender: FDA-Public Use
  Company Number: US-APOTEX-2015AP006226

PATIENT
  Age: 46 Year
  Sex: Female

DRUGS (4)
  1. DESVENLAFAXINE. [Suspect]
     Active Substance: DESVENLAFAXINE
  2. ZOLPIDEM TARTRATE. [Suspect]
     Active Substance: ZOLPIDEM TARTRATE
  3. TOPIRAMATE. [Suspect]
     Active Substance: TOPIRAMATE
  4. AMITRIPTYLINE [Suspect]
     Active Substance: AMITRIPTYLINE

REACTIONS (1)
  - Completed suicide [Fatal]
